FAERS Safety Report 6745154-7 (Version None)
Quarter: 2010Q2

REPORT INFORMATION
  Report Type: 
  Country: None (occurrence: None)
  Receive Date: 20100527
  Receipt Date: 20100519
  Transmission Date: 20101027
  Serious: Yes (Hospitalization)
  Sender: FDA-Public Use
  Company Number: JP-WATSON-2010-06797

PATIENT
  Age: 48 Year
  Sex: Female
  Weight: 55 kg

DRUGS (8)
  1. FLUOROURACIL [Suspect]
     Indication: COLON CANCER
     Dosage: 400-2400 MG/MM BOLUS AND INFUSION
     Route: 042
     Dates: start: 20070601
  2. FLUOROURACIL [Suspect]
     Dosage: 400-2400 MG/MM INFUSION
     Route: 042
     Dates: start: 20080501
  3. IRINOTECAN HYDROCHLORIDE [Suspect]
     Indication: COLON CANCER METASTATIC
     Dosage: 150MG/MM
     Route: 042
     Dates: start: 20080501
  4. OXALIPLATIN [Suspect]
     Indication: COLON CANCER
     Dosage: 85MG/MM
     Route: 042
     Dates: start: 20070601
  5. OXALIPLATIN [Suspect]
     Dosage: 85MG/MM
     Route: 042
     Dates: start: 20080501
  6. LEUCOVORIN CALCIUM [Suspect]
     Indication: COLON CANCER
     Dosage: 200 MG/MM
     Route: 042
     Dates: start: 20070601
  7. LEUCOVORIN CALCIUM [Suspect]
     Dosage: 200 MG/MM
     Route: 042
     Dates: start: 20080501
  8. CETUXIMAB [Suspect]
     Indication: COLON CANCER
     Dosage: UNK
     Dates: start: 20081120

REACTIONS (1)
  - PULMONARY EMBOLISM [None]
